FAERS Safety Report 25368942 (Version 2)
Quarter: 2025Q3

REPORT INFORMATION
  Report Type: Spontaneous
  Country: KR (occurrence: KR)
  Receive Date: 20250528
  Receipt Date: 20250804
  Transmission Date: 20251021
  Serious: No
  Sender: SK LIFE SCIENCE
  Company Number: KR-SK LIFE SCIENCE, INC.-SKPVG-2025-000998

PATIENT

DRUGS (15)
  1. XCOPRI [Suspect]
     Active Substance: CENOBAMATE
     Indication: Product used for unknown indication
     Route: 065
  2. XCOPRI [Suspect]
     Active Substance: CENOBAMATE
     Dosage: 250 MILLIGRAM, (200MG PLUS 50MG) DAILY
     Route: 048
     Dates: start: 20240723, end: 20250513
  3. XCOPRI [Suspect]
     Active Substance: CENOBAMATE
     Dosage: 250 MILLIGRAM, (200MG PLUS 50MG) DAILY
     Route: 048
     Dates: start: 20240723, end: 20250513
  4. CEFTRIAXONE [Concomitant]
     Active Substance: CEFTRIAXONE
     Indication: Inflammation
     Route: 048
     Dates: start: 20250514, end: 20250525
  5. SODIUM CHLORIDE [Concomitant]
     Active Substance: SODIUM CHLORIDE
     Indication: Product used for unknown indication
     Route: 065
     Dates: start: 20250514, end: 20250525
  6. ACETAMINOPHEN [Concomitant]
     Active Substance: ACETAMINOPHEN
     Indication: Pain
     Dosage: 650 MILLIGRAM, (1 TABLET ? 2) INJECTION
     Route: 065
     Dates: start: 20250514, end: 20250515
  7. PENIRAMIN [Concomitant]
     Indication: Nasopharyngitis
     Route: 065
     Dates: start: 20250516, end: 20250520
  8. NORZYME [Concomitant]
     Indication: Gastrointestinal disorder
     Route: 048
     Dates: start: 20250521, end: 20250522
  9. NORZYME [Concomitant]
     Dosage: 457.7MG (1 CAPSULE ? 3)
     Route: 048
     Dates: start: 20250527, end: 20250612
  10. HERBALS [Concomitant]
     Active Substance: HERBALS
     Indication: Gastrointestinal disorder
     Route: 048
     Dates: start: 20250603, end: 20250603
  11. KEPPRA [Concomitant]
     Active Substance: LEVETIRACETAM
     Indication: Epilepsy
     Route: 048
     Dates: start: 20250605, end: 20250612
  12. DEPAKOTE [Concomitant]
     Active Substance: DIVALPROEX SODIUM
     Indication: Epilepsy
     Route: 048
     Dates: start: 20250605, end: 20250612
  13. NEOPAT [Concomitant]
     Indication: Epilepsy
     Route: 048
     Dates: start: 20250605, end: 20250612
  14. TOPAMAX [Concomitant]
     Active Substance: TOPIRAMATE
     Indication: Epilepsy
     Route: 048
     Dates: start: 20250605, end: 20250612
  15. PARASON [Concomitant]
     Indication: Surgery
     Dosage: 2% 10G (1 EA ? 1)
     Route: 065
     Dates: start: 20250610, end: 20250610

REACTIONS (1)
  - No adverse event [Unknown]
